FAERS Safety Report 5151402-X (Version None)
Quarter: 2006Q4

REPORT INFORMATION
  Report Type: 
  Country: None (occurrence: None)
  Receive Date: 20061110
  Receipt Date: 20061110
  Transmission Date: 20070319
  Serious: Yes (Hospitalization)
  Sender: FDA-Public Use
  Company Number: None

PATIENT
  Age: 49 Year
  Sex: Male
  Weight: 86.637 kg

DRUGS (11)
  1. GEMCITABINE [Suspect]
     Indication: SARCOMA
     Dosage: 900 MG/M2
     Dates: start: 20060223, end: 20061030
  2. DOCTAXEL [Suspect]
     Indication: SARCOMA
     Dosage: 100 MG/M2
     Dates: start: 20061030
  3. OXYCODONE HCL [Concomitant]
  4. IMMEDIATE RELEASE MORPHINE SULFATE [Concomitant]
  5. PREDNISONE TAB [Concomitant]
  6. LIPITOR [Concomitant]
  7. ALEVE [Concomitant]
  8. NIACIN [Concomitant]
  9. DECADRON [Concomitant]
  10. KYTRIL [Concomitant]
  11. NEULASTA [Concomitant]

REACTIONS (5)
  - COLITIS [None]
  - CONSTIPATION [None]
  - DIARRHOEA [None]
  - OCCULT BLOOD POSITIVE [None]
  - PYREXIA [None]
